FAERS Safety Report 19188372 (Version 1)
Quarter: 2021Q2

REPORT INFORMATION
  Report Type: Spontaneous
  Country: US (occurrence: US)
  Receive Date: 20210427
  Receipt Date: 20210427
  Transmission Date: 20210717
  Serious: Yes (Other)
  Sender: FDA-Public Use
  Company Number: None

PATIENT
  Age: 62 Year
  Sex: Male
  Weight: 110.25 kg

DRUGS (3)
  1. IMDEVIMAB. [Suspect]
     Active Substance: IMDEVIMAB
     Indication: COVID-19
     Dosage: ?          OTHER FREQUENCY:ONCE;?
     Route: 040
     Dates: start: 20210424, end: 20210424
  2. CASIRIVIMAB. [Suspect]
     Active Substance: CASIRIVIMAB
     Indication: COVID-19
     Dosage: ?          OTHER FREQUENCY:ONCE;?
     Route: 040
     Dates: start: 20210424, end: 20210424
  3. SODIUM CHLORIDE 0.9 % INFUSION [Concomitant]
     Dates: start: 20210424

REACTIONS (4)
  - Lung opacity [None]
  - Pneumonia [None]
  - Cyanosis [None]
  - Hypersensitivity [None]

NARRATIVE: CASE EVENT DATE: 20210424
